FAERS Safety Report 7514744-6 (Version None)
Quarter: 2011Q2

REPORT INFORMATION
  Report Type: 
  Country: None (occurrence: None)
  Receive Date: 20110601
  Receipt Date: 20110526
  Transmission Date: 20111010
  Serious: Yes (Death, Hospitalization)
  Sender: FDA-Public Use
  Company Number: US-TEVA-219797USA

PATIENT
  Sex: Female
  Weight: 43.2 kg

DRUGS (11)
  1. IRINOTECAN HCL [Suspect]
     Dosage: 17.1429 MILLIGRAM;
     Route: 042
     Dates: start: 20070509, end: 20070606
  2. FLUOROURACIL [Suspect]
     Indication: GASTRIC CANCER
     Dosage: 46.4286 MILLIGRAM;
     Route: 041
     Dates: start: 20070418, end: 20070418
  3. SODIUM CHLORIDE [Concomitant]
     Dates: start: 20070521
  4. VICODIN [Concomitant]
     Dates: start: 20070409
  5. FLUOROURACIL [Suspect]
     Dosage: 108.9286 MILLIGRAM;
     Route: 041
     Dates: start: 20070509, end: 20070606
  6. AXITINIB [Suspect]
     Indication: GASTRIC CANCER
     Dosage: 10 MILLIGRAM;
     Route: 048
  7. GRANISETRON HCL [Concomitant]
     Dates: start: 20070511
  8. FLUOROURACIL [Suspect]
     Dosage: 35.7143 MILLIGRAM;
     Route: 040
     Dates: start: 20070509, end: 20070606
  9. LEUCOVORIN CALCIUM [Suspect]
     Indication: GASTRIC CANCER
     Dosage: 46.4286 MILLIGRAM;
     Route: 042
     Dates: start: 20070418, end: 20070606
  10. IRINOTECAN HCL [Suspect]
     Indication: GASTRIC CANCER
     Dosage: 20 MILLIGRAM;
     Route: 042
     Dates: start: 20070418, end: 20070418
  11. FLUOROURACIL [Suspect]
     Dosage: 135.7143 MILLIGRAM;
     Route: 041
     Dates: start: 20070418, end: 20070418

REACTIONS (2)
  - RESPIRATORY FAILURE [None]
  - ABDOMINAL PAIN [None]
